FAERS Safety Report 7190078-7 (Version None)
Quarter: 2010Q4

REPORT INFORMATION
  Report Type: 
  Country: None (occurrence: None)
  Receive Date: 20101223
  Receipt Date: 20101216
  Transmission Date: 20110411
  Serious: No
  Sender: FDA-Public Use
  Company Number: US-PFIZER INC-US-WYE-H18531510

PATIENT
  Sex: Female
  Weight: 63.5 kg

DRUGS (3)
  1. PRISTIQ [Suspect]
     Indication: DEPRESSION
     Dosage: 50 MG, 1X/DAY
     Dates: start: 20080801
  2. PRISTIQ [Suspect]
     Dosage: 50 MG, ALTERNATE DAY
  3. PRISTIQ [Suspect]
     Dosage: 25 MG, UNK

REACTIONS (13)
  - ABDOMINAL DISCOMFORT [None]
  - ACTIVITIES OF DAILY LIVING IMPAIRED [None]
  - AGITATION [None]
  - ANXIETY [None]
  - DEPRESSION [None]
  - DRUG INEFFECTIVE [None]
  - FEELING ABNORMAL [None]
  - MEMORY IMPAIRMENT [None]
  - NAUSEA [None]
  - SEDATION [None]
  - SLUGGISHNESS [None]
  - SOMNOLENCE [None]
  - VOMITING [None]
